FAERS Safety Report 13079703 (Version 3)
Quarter: 2017Q1

REPORT INFORMATION
  Report Type: Spontaneous
  Country: US (occurrence: US)
  Receive Date: 20170103
  Receipt Date: 20170221
  Transmission Date: 20170428
  Serious: Yes (Hospitalization, Other)
  Sender: FDA-Public Use
  Company Number: US-009507513-1612USA014467

PATIENT
  Age: 45 Year
  Sex: Female

DRUGS (1)
  1. DULERA [Suspect]
     Active Substance: FORMOTEROL FUMARATE DIHYDRATE\MOMETASONE FUROATE
     Indication: ASTHMA
     Dosage: 200/5MCG
     Route: 055

REACTIONS (6)
  - Haemoptysis [Recovering/Resolving]
  - Dysphonia [Recovering/Resolving]
  - Bacterial infection [Recovering/Resolving]
  - Pneumothorax [Recovering/Resolving]
  - Product quality issue [Unknown]
  - Pneumonia [Recovering/Resolving]

NARRATIVE: CASE EVENT DATE: 201610
